FAERS Safety Report 5740843-5 (Version None)
Quarter: 2008Q2

REPORT INFORMATION
  Report Type: 
  Country: None (occurrence: None)
  Receive Date: 20080515
  Receipt Date: 20080330
  Transmission Date: 20081010
  Serious: No
  Sender: FDA-Public Use
  Company Number: WAES 0804USA00183

PATIENT
  Age: 50 Year
  Sex: Male

DRUGS (11)
  1. TAB ISENTRESS [Suspect]
     Indication: HIV INFECTION
     Dosage: 400 MG/BID/PO
     Route: 048
     Dates: start: 20080204, end: 20080211
  2. AZMACORT [Concomitant]
  3. EPIVIR [Concomitant]
  4. IMODIUM [Concomitant]
  5. LAMICTAL [Concomitant]
  6. LEXIVA [Concomitant]
  7. SEROQUEL [Concomitant]
  8. WELLBUTRIN [Concomitant]
  9. ALBUTEROL [Concomitant]
  10. RITONAVIR [Concomitant]
  11. TENEFOVIR [Concomitant]

REACTIONS (1)
  - BACK PAIN [None]
